FAERS Safety Report 11731660 (Version 1)
Quarter: 2015Q4

REPORT INFORMATION
  Report Type: Spontaneous
  Country: US (occurrence: US)
  Receive Date: 20151110
  Receipt Date: 20151110
  Transmission Date: 20160304
  Serious: No
  Sender: FDA-Public Use
  Company Number: US-ELI_LILLY_AND_COMPANY-US201203006415

PATIENT
  Sex: Female

DRUGS (5)
  1. FORTEO [Suspect]
     Active Substance: TERIPARATIDE
     Indication: OSTEOPOROSIS
     Dosage: 20 UG, QD
     Route: 065
     Dates: start: 20111201
  2. CALCIUM [Concomitant]
     Active Substance: CALCIUM
     Route: 065
  3. CALCIUM [Concomitant]
     Active Substance: CALCIUM
     Route: 065
  4. MULTIVITAMIN [Concomitant]
     Active Substance: VITAMINS
     Route: 065
  5. MULTIVITAMIN [Concomitant]
     Active Substance: VITAMINS
     Route: 065

REACTIONS (8)
  - Blood calcium increased [Recovering/Resolving]
  - Asthenia [Recovering/Resolving]
  - Feeling abnormal [Recovering/Resolving]
  - Restless legs syndrome [Recovering/Resolving]
  - Headache [Recovering/Resolving]
  - Nausea [Recovering/Resolving]
  - Poor quality sleep [Recovering/Resolving]
  - Arthralgia [Recovering/Resolving]
